FAERS Safety Report 21006599 (Version 6)
Quarter: 2023Q2

REPORT INFORMATION
  Report Type: Report from Study
  Country: US (occurrence: US)
  Receive Date: 20220625
  Receipt Date: 20230419
  Transmission Date: 20230722
  Serious: Yes (Hospitalization, Other)
  Sender: FDA-Public Use
  Company Number: US-ABBVIE-22K-163-4415942-00

PATIENT
  Sex: Female

DRUGS (4)
  1. IMBRUVICA [Suspect]
     Active Substance: IBRUTINIB
     Indication: Chronic lymphocytic leukaemia
     Route: 048
     Dates: start: 20190126
  2. IMBRUVICA [Suspect]
     Active Substance: IBRUTINIB
     Indication: Chronic lymphocytic leukaemia
     Dosage: DOSE DECREASED
     Route: 048
  3. IMBRUVICA [Suspect]
     Active Substance: IBRUTINIB
     Indication: Chronic lymphocytic leukaemia
     Dosage: DOSE DECREASED
     Route: 048
  4. EZETIMIBE [Suspect]
     Active Substance: EZETIMIBE
     Indication: Product used for unknown indication
     Route: 065

REACTIONS (12)
  - Angina pectoris [Unknown]
  - Aortic dilatation [Unknown]
  - Blood pressure abnormal [Unknown]
  - Panic attack [Unknown]
  - Blood sodium decreased [Unknown]
  - Palpitations [Unknown]
  - Supraventricular tachycardia [Unknown]
  - Stress [Unknown]
  - Heart rate increased [Unknown]
  - Ear infection [Unknown]
  - Pruritus [Unknown]
  - Aortic dilatation [Recovered/Resolved]

NARRATIVE: CASE EVENT DATE: 20210101
